FAERS Safety Report 6431359-1 (Version None)
Quarter: 2009Q4

REPORT INFORMATION
  Report Type: 
  Country: None (occurrence: None)
  Receive Date: 20091106
  Receipt Date: 20091105
  Transmission Date: 20100525
  Serious: Yes (Other)
  Sender: FDA-Public Use
  Company Number: BR-ABBOTT-09P-020-0603875-00

PATIENT
  Sex: Female
  Weight: 95 kg

DRUGS (11)
  1. HUMIRA [Suspect]
     Indication: RHEUMATOID ARTHRITIS
     Route: 058
  2. FUROSEMIDE [Suspect]
     Indication: DIURETIC THERAPY
     Route: 048
     Dates: start: 19990101
  3. VALSARTAN [Concomitant]
     Indication: HYPERTENSION
     Route: 048
     Dates: start: 19990101
  4. CAPTOPRIL [Concomitant]
     Indication: HYPERTENSION
     Route: 048
     Dates: start: 19990101
  5. OMEPRAZOLE [Concomitant]
     Indication: GASTRIC DISORDER
     Route: 048
     Dates: start: 19990101
  6. AMRIX [Concomitant]
     Indication: MUSCLE RELAXANT THERAPY
     Route: 048
     Dates: start: 20070101
  7. HALOPERIDOL [Concomitant]
     Indication: BLOOD URIC ACID
     Route: 048
  8. CIPROFIBRATE [Concomitant]
     Indication: BLOOD TRIGLYCERIDES
     Route: 048
  9. ALPRAZOLAM [Concomitant]
     Indication: DEPRESSION
     Route: 048
     Dates: start: 20070101
  10. ALPRAZOLAM [Concomitant]
     Indication: ANXIETY
  11. FITALOPRAM (?) [Concomitant]
     Indication: DEPRESSION
     Route: 048
     Dates: start: 20070101

REACTIONS (1)
  - HAEMOGLOBIN DECREASED [None]
